FAERS Safety Report 5254874-5 (Version None)
Quarter: 2007Q1

REPORT INFORMATION
  Report Type: 
  Country: None (occurrence: None)
  Receive Date: 20070305
  Receipt Date: 20070221
  Transmission Date: 20070707
  Serious: Yes (Hospitalization)
  Sender: FDA-Public Use
  Company Number: FR-BRISTOL-MYERS SQUIBB COMPANY-13689823

PATIENT
  Age: 43 Year
  Sex: Male
  Weight: 70 kg

DRUGS (8)
  1. VIDEX EC [Suspect]
     Indication: HIV INFECTION
     Route: 048
     Dates: start: 20060907
  2. REYATAZ [Suspect]
     Indication: HIV INFECTION
     Route: 048
     Dates: start: 20060907
  3. NORVIR [Suspect]
     Indication: HIV INFECTION
     Route: 048
     Dates: start: 20060907
  4. ZIAGEN [Suspect]
     Indication: HIV INFECTION
     Route: 048
     Dates: start: 20060907
  5. FLECAINIDE ACETATE [Concomitant]
     Indication: ATRIAL FIBRILLATION
     Dates: start: 20040101
  6. EFFEXOR [Concomitant]
     Indication: DEPRESSION
  7. TERCIAN [Concomitant]
  8. IMOVANE [Concomitant]

REACTIONS (3)
  - ANAEMIA [None]
  - ANAEMIA FOLATE DEFICIENCY [None]
  - BLOOD LACTATE DEHYDROGENASE INCREASED [None]
